FAERS Safety Report 23230874 (Version 1)
Quarter: 2023Q4

REPORT INFORMATION
  Report Type: Spontaneous
  Country: US (occurrence: US)
  Receive Date: 20231127
  Receipt Date: 20231127
  Transmission Date: 20240110
  Serious: Yes (Other)
  Sender: FDA-Public Use
  Company Number: US-JNJFOC-20230761626

PATIENT
  Age: 57 Year
  Sex: Female
  Weight: 69.462 kg

DRUGS (2)
  1. BENADRYL EXTRA STRENGTH ITCH COOLING [Suspect]
     Active Substance: DIPHENHYDRAMINE HYDROCHLORIDE\ZINC ACETATE
     Indication: Arthropod sting
     Dosage: AS PER DIRECTIONS - 2 PUMP SPRAYS, AFTER ABOUT AN HOUR OR TWO SHE SPRAYED ANOTHER PUMP TO THE AREA A
     Route: 061
     Dates: start: 20230724, end: 20230724
  2. IBUPROFEN [Concomitant]
     Active Substance: IBUPROFEN
     Indication: Arthropod sting
     Route: 065
     Dates: start: 202307

REACTIONS (3)
  - First degree chemical burn of skin [Not Recovered/Not Resolved]
  - Cellulitis [Not Recovered/Not Resolved]
  - Drug hypersensitivity [Not Recovered/Not Resolved]

NARRATIVE: CASE EVENT DATE: 20230724
